FAERS Safety Report 21480844 (Version 1)
Quarter: 2022Q4

REPORT INFORMATION
  Report Type: Report from Study
  Country: US (occurrence: US)
  Receive Date: 20221019
  Receipt Date: 20221019
  Transmission Date: 20230113
  Serious: Yes (Hospitalization, Other)
  Sender: FDA-Public Use
  Company Number: US-CELGENE-USA-20200706046

PATIENT
  Age: 70 Year
  Sex: Female
  Weight: 86.3 kg

DRUGS (11)
  1. PACLITAXEL [Suspect]
     Active Substance: PACLITAXEL
     Indication: Pancreatic carcinoma
     Dosage: FREQUENCY TEXT: DAYS 1 AND 8 OF EACH 21 DAY CYCLE?254 MILLIGRAM
     Route: 042
     Dates: start: 20200707, end: 20200923
  2. PACLITAXEL [Suspect]
     Active Substance: PACLITAXEL
     Dosage: 125 MILLIGRAM/SQ. METER
     Route: 042
     Dates: start: 2020, end: 20200714
  3. CISPLATIN [Suspect]
     Active Substance: CISPLATIN
     Indication: Pancreatic carcinoma
     Dosage: FREQUENCY TEXT: DAYS 1 AND 8 OF EACH 21 DAY CYCLE?51 MILLIGRAM
     Route: 042
     Dates: start: 20200707, end: 20200923
  4. CISPLATIN [Suspect]
     Active Substance: CISPLATIN
     Dosage: 25 MILLIGRAM/SQ. METER
     Route: 042
     Dates: start: 2020, end: 20200714
  5. GEMCITABINE [Suspect]
     Active Substance: GEMCITABINE
     Indication: Pancreatic carcinoma
     Dosage: FREQUENCY TEXT: DAYS 1 AND 8 OF EACH 21 DAY CYCLE?2000 MILLIGRAM
     Route: 042
     Dates: start: 20200707, end: 20200923
  6. GEMCITABINE [Suspect]
     Active Substance: GEMCITABINE
     Dosage: 1000 MILLIGRAM/SQ. METER
     Route: 042
     Dates: start: 2020, end: 20200714
  7. MORPHINE [Concomitant]
     Active Substance: MORPHINE
     Indication: Product used for unknown indication
     Dosage: FREQUENCY TEXT: PRN?48 MILLIGRAM
     Route: 042
     Dates: start: 20200722, end: 20200728
  8. Hydrocortisone PF [Concomitant]
     Indication: Product used for unknown indication
     Dosage: FREQUENCY TEXT: ONCE
     Route: 042
     Dates: start: 20200722, end: 20200722
  9. CEFEPIME [Concomitant]
     Active Substance: CEFEPIME HYDROCHLORIDE
     Indication: Product used for unknown indication
     Dosage: 6 GRAM
     Route: 042
     Dates: start: 20200722, end: 20200728
  10. FLAGYL [Concomitant]
     Active Substance: METRONIDAZOLE\METRONIDAZOLE HYDROCHLORIDE
     Indication: Product used for unknown indication
     Dosage: 1500 MILLIGRAM
     Route: 042
     Dates: start: 20200722, end: 20200728
  11. VANCOMYCIN [Concomitant]
     Active Substance: VANCOMYCIN
     Indication: Product used for unknown indication
     Dosage: FREQUENCY TEXT: ONCE
     Route: 042
     Dates: start: 20200722, end: 20200722

REACTIONS (1)
  - Enterocolitis [Unknown]

NARRATIVE: CASE EVENT DATE: 20200721
